FAERS Safety Report 5672022-4 (Version None)
Quarter: 2008Q1

REPORT INFORMATION
  Report Type: 
  Country: None (occurrence: None)
  Receive Date: 20080317
  Receipt Date: 20080317
  Transmission Date: 20080703
  Serious: No
  Sender: FDA-Public Use
  Company Number: None

PATIENT
  Age: 49 Year
  Sex: Male
  Weight: 50 kg

DRUGS (1)
  1. VARENICLINE [Suspect]
     Indication: NICOTINE DEPENDENCE
     Dosage: 1MG BID PO
     Route: 048
     Dates: start: 20080102, end: 20080208

REACTIONS (2)
  - AGITATION [None]
  - ANGER [None]
